FAERS Safety Report 16043917 (Version 2)
Quarter: 2019Q2

REPORT INFORMATION
  Report Type: Spontaneous
  Country: US (occurrence: US)
  Receive Date: 20190306
  Receipt Date: 20190405
  Transmission Date: 20190711
  Serious: No
  Sender: FDA-Public Use
  Company Number: US-SA-2019SA057707

PATIENT
  Age: 67 Year
  Sex: Male

DRUGS (1)
  1. LANTUS SOLOSTAR [Suspect]
     Active Substance: INSULIN GLARGINE
     Indication: DIABETES MELLITUS
     Dosage: 62 U, QD
     Route: 065

REACTIONS (6)
  - Tremor [Unknown]
  - Injection site pain [Unknown]
  - Hyperhidrosis [Unknown]
  - Vomiting [Unknown]
  - Malaise [Unknown]
  - Injection site haemorrhage [Unknown]
